FAERS Safety Report 7800302-2 (Version None)
Quarter: 2011Q4

REPORT INFORMATION
  Report Type: 
  Country: None (occurrence: None)
  Receive Date: 20111006
  Receipt Date: 20110930
  Transmission Date: 20120403
  Serious: Yes (Other)
  Sender: FDA-Public Use
  Company Number: DE-GLAXOSMITHKLINE-D0072904A

PATIENT
  Age: 36 Year
  Sex: Male

DRUGS (1)
  1. PROMACTA [Suspect]
     Route: 048
     Dates: start: 20100101

REACTIONS (1)
  - THROMBOCYTOPENIA [None]
